FAERS Safety Report 8192062-3 (Version None)
Quarter: 2012Q1

REPORT INFORMATION
  Report Type: 
  Country: None (occurrence: None)
  Receive Date: 20120307
  Receipt Date: 20120305
  Transmission Date: 20120608
  Serious: Yes (Death)
  Sender: FDA-Public Use
  Company Number: PHEH2012US005121

PATIENT
  Sex: Male

DRUGS (2)
  1. LESCOL [Suspect]
  2. LOTREL [Concomitant]

REACTIONS (1)
  - DEATH [None]
